FAERS Safety Report 24052712 (Version 2)
Quarter: 2024Q3

REPORT INFORMATION
  Report Type: Spontaneous
  Country: JP (occurrence: JP)
  Receive Date: 20240705
  Receipt Date: 20240808
  Transmission Date: 20241017
  Serious: Yes (Life-Threatening, Hospitalization, Other)
  Sender: BRISTOL MYERS SQUIBB
  Company Number: JP-BRISTOL-MYERS SQUIBB COMPANY-2024-105350

PATIENT

DRUGS (2)
  1. YERVOY [Suspect]
     Active Substance: IPILIMUMAB
     Indication: Oesophageal carcinoma
     Route: 041
  2. OPDIVO [Suspect]
     Active Substance: NIVOLUMAB
     Indication: Oesophageal carcinoma

REACTIONS (13)
  - Cytokine release syndrome [Unknown]
  - Depressed level of consciousness [Recovered/Resolved]
  - Blood pressure decreased [Unknown]
  - Blood creatine phosphokinase increased [Unknown]
  - Renal impairment [Unknown]
  - Cardiac failure [Unknown]
  - Multiple organ dysfunction syndrome [Unknown]
  - Immune-mediated myocarditis [Unknown]
  - Immune-mediated encephalitis [Unknown]
  - Azotaemia [Unknown]
  - Delirium febrile [Unknown]
  - Dyskinesia [Unknown]
  - Oxygen saturation decreased [Unknown]
